FAERS Safety Report 12124740 (Version 3)
Quarter: 2016Q2

REPORT INFORMATION
  Report Type: Spontaneous
  Country: GB (occurrence: GB)
  Receive Date: 20160229
  Receipt Date: 20160610
  Transmission Date: 20160815
  Serious: Yes (Other)
  Sender: FDA-Public Use
  Company Number: GB-ROCHE-1717125

PATIENT
  Sex: Female

DRUGS (3)
  1. CYCLOPHOSPHAMIDE. [Concomitant]
     Active Substance: CYCLOPHOSPHAMIDE
  2. HERCEPTIN [Suspect]
     Active Substance: TRASTUZUMAB
     Indication: PRODUCT USED FOR UNKNOWN INDICATION
     Route: 058
  3. EPIRUBICIN [Concomitant]
     Active Substance: EPIRUBICIN

REACTIONS (12)
  - Fatigue [Unknown]
  - Dysgeusia [Unknown]
  - Lethargy [Not Recovered/Not Resolved]
  - Joint injury [Unknown]
  - Onychoclasis [Not Recovered/Not Resolved]
  - Limb injury [Unknown]
  - Injection site discolouration [Unknown]
  - Pigmentation disorder [Unknown]
  - Tongue dry [Not Recovered/Not Resolved]
  - Diarrhoea [Recovered/Resolved]
  - Vein disorder [Not Recovered/Not Resolved]
  - Fall [Unknown]
